FAERS Safety Report 13463757 (Version 1)
Quarter: 2017Q2

REPORT INFORMATION
  Report Type: Spontaneous
  Country: US (occurrence: US)
  Receive Date: 20170420
  Receipt Date: 20170420
  Transmission Date: 20170830
  Serious: No
  Sender: FDA-Public Use
  Company Number: US-ROCHE-676322

PATIENT
  Age: 16 Year
  Sex: Male
  Weight: 90.7 kg

DRUGS (2)
  1. ACCUTANE [Suspect]
     Active Substance: ISOTRETINOIN
     Indication: ACNE CYSTIC
     Dosage: 40MG ONCE DAILY WITH ALTERNATING DAYS OF 80MG ONCE DAILY
     Route: 048
     Dates: start: 20090916, end: 20090926
  2. ACCUTANE [Suspect]
     Active Substance: ISOTRETINOIN
     Route: 048

REACTIONS (7)
  - Sleep talking [Recovered/Resolved]
  - Abnormal behaviour [Recovering/Resolving]
  - Mood altered [Recovered/Resolved]
  - Insomnia [Recovering/Resolving]
  - Mental disorder [Recovering/Resolving]
  - Depressed mood [Recovering/Resolving]
  - Crying [Recovering/Resolving]

NARRATIVE: CASE EVENT DATE: 20090926
